FAERS Safety Report 5793467-8 (Version None)
Quarter: 2008Q2

REPORT INFORMATION
  Report Type: 
  Country: None (occurrence: None)
  Receive Date: 20080627
  Receipt Date: 20080623
  Transmission Date: 20081010
  Serious: Yes (Hospitalization)
  Sender: FDA-Public Use
  Company Number: DE-JNJFOC-20080103470

PATIENT
  Sex: Female
  Weight: 70 kg

DRUGS (3)
  1. PALIPERIDONE [Suspect]
     Indication: SCHIZOPHRENIA
     Route: 048
  2. AKINETON [Concomitant]
     Indication: EXTRAPYRAMIDAL DISORDER
     Route: 048
  3. DEXAMETHASONE [Concomitant]
     Indication: CONJUNCTIVITIS
     Route: 048

REACTIONS (1)
  - CIRCULATORY COLLAPSE [None]
